FAERS Safety Report 8026797-X (Version None)
Quarter: 2011Q4

REPORT INFORMATION
  Report Type: 
  Country: None (occurrence: None)
  Receive Date: 20111130
  Receipt Date: 20110817
  Transmission Date: 20120403
  Serious: Yes (Other)
  Sender: FDA-Public Use
  Company Number: US201001002647

PATIENT
  Age: 61 Year
  Sex: Male
  Weight: 113.4 kg

DRUGS (20)
  1. ETODOLAC [Concomitant]
  2. SAW PALMETTO (SERENOA REPENS) [Concomitant]
  3. GABAPENTIN [Concomitant]
  4. VARDENAFIL HYDROCHLORIDE (LEVITRA) [Concomitant]
  5. WELCHOL [Concomitant]
  6. STRATTERA [Concomitant]
  7. CIALIS [Concomitant]
  8. ASTELIN [Concomitant]
  9. COZAAR [Concomitant]
  10. RITALIN [Concomitant]
  11. METFORMIN HCL [Concomitant]
  12. HUMALOG [Concomitant]
  13. ZETIA [Concomitant]
  14. FELODIPINE [Concomitant]
  15. BYETTA [Suspect]
     Dosage: 5 UG, EACH MORNING, SUBCUTANEOUS; 10 UG, EACH EVENING, SUBCUTANEOUS,,10 UT, BID
     Route: 058
     Dates: start: 20060523, end: 20080919
  16. BYETTA [Suspect]
     Dosage: 5 UG, EACH MORNING, SUBCUTANEOUS; 10 UG, EACH EVENING, SUBCUTANEOUS,,10 UT, BID
     Route: 058
     Dates: start: 20060523, end: 20080919
  17. BYETTA [Suspect]
     Dosage: 5 UG, EACH MORNING, SUBCUTANEOUS; 10 UG, EACH EVENING, SUBCUTANEOUS,,10 UT, BID
     Route: 058
     Dates: start: 20060523, end: 20080601
  18. EXENATIDE (EXENATIDE PEN) [Concomitant]
  19. ATENOLOL [Concomitant]
  20. LANTUS [Concomitant]

REACTIONS (2)
  - PANCREATITIS ACUTE [None]
  - OFF LABEL USE [None]
